FAERS Safety Report 4657254-6 (Version None)
Quarter: 2005Q2

REPORT INFORMATION
  Report Type: 
  Country: None (occurrence: None)
  Receive Date: 20050506
  Receipt Date: 20050428
  Transmission Date: 20051028
  Serious: Yes (Death)
  Sender: FDA-Public Use
  Company Number: 163-20785-05050033

PATIENT
  Age: 73 Year
  Sex: Male

DRUGS (1)
  1. THALOMID [Suspect]
     Dosage: 150 MG, DAILY, ORAL
     Route: 048
     Dates: start: 20021011, end: 20020101

REACTIONS (1)
  - MYELODYSPLASTIC SYNDROME [None]
